FAERS Safety Report 8776784 (Version 2)
Quarter: 2013Q1

REPORT INFORMATION
  Report Type: Spontaneous
  Country: US (occurrence: US)
  Receive Date: 20120911
  Receipt Date: 20130219
  Transmission Date: 20140127
  Serious: Yes (Hospitalization, Other)
  Sender: FDA-Public Use
  Company Number: US-JNJFOC-20120900530

PATIENT
  Age: 21 Year
  Sex: Male
  Weight: 104.33 kg

DRUGS (8)
  1. CONCERTA [Suspect]
     Indication: ATTENTION DEFICIT/HYPERACTIVITY DISORDER
     Route: 048
     Dates: end: 200601
  2. CONCERTA [Suspect]
     Indication: ATTENTION DEFICIT/HYPERACTIVITY DISORDER
     Route: 048
     Dates: start: 20120723, end: 20120724
  3. CONCERTA [Suspect]
     Indication: ATTENTION DEFICIT/HYPERACTIVITY DISORDER
     Route: 048
     Dates: start: 201207, end: 20120716
  4. CONCERTA [Suspect]
     Indication: ATTENTION DEFICIT/HYPERACTIVITY DISORDER
     Route: 048
     Dates: start: 201206, end: 201207
  5. ATIVAN [Concomitant]
     Indication: SEDATIVE THERAPY
  6. VISTARIL [Concomitant]
     Indication: SEDATIVE THERAPY
     Route: 065
  7. HALDOL [Concomitant]
     Indication: SEDATIVE THERAPY
     Route: 048
  8. RISPERDAL [Concomitant]
     Dosage: 0.5 MG AM AND 1.5 MG PM
     Route: 048

REACTIONS (11)
  - Disorientation [Unknown]
  - Mental impairment [Not Recovered/Not Resolved]
  - Disturbance in attention [Not Recovered/Not Resolved]
  - Mental impairment [Unknown]
  - Insomnia [Unknown]
  - Drug ineffective [Unknown]
  - Incoherent [Unknown]
  - Somnolence [Not Recovered/Not Resolved]
  - Fatigue [Not Recovered/Not Resolved]
  - Slow response to stimuli [Not Recovered/Not Resolved]
  - Treatment noncompliance [Unknown]
